FAERS Safety Report 5104751-5 (Version None)
Quarter: 2006Q3

REPORT INFORMATION
  Report Type: 
  Country: None (occurrence: None)
  Receive Date: 20060911
  Receipt Date: 20060911
  Transmission Date: 20061208
  Serious: Yes (Other)
  Sender: FDA-Public Use
  Company Number: None

PATIENT
  Age: 45 Year
  Sex: Female
  Weight: 68.0396 kg

DRUGS (1)
  1. ZOLOFT [Suspect]
     Dosage: UP TO 150 PER DAY PO
     Route: 048
     Dates: start: 20050901, end: 20060301

REACTIONS (6)
  - AGGRESSION [None]
  - ANGER [None]
  - HALLUCINATION [None]
  - MANIA [None]
  - PARANOIA [None]
  - REFUSAL OF TREATMENT BY PATIENT [None]
